FAERS Safety Report 11376773 (Version 1)
Quarter: 2015Q3

REPORT INFORMATION
  Report Type: Spontaneous
  Country: US (occurrence: US)
  Receive Date: 20150813
  Receipt Date: 20150813
  Transmission Date: 20151125
  Serious: No
  Sender: FDA-Public Use
  Company Number: US-ELI_LILLY_AND_COMPANY-US201508003477

PATIENT
  Sex: Female

DRUGS (3)
  1. HUMALOG [Suspect]
     Active Substance: INSULIN LISPRO
     Indication: TYPE 2 DIABETES MELLITUS
     Dosage: 13 U, TID
     Route: 065
  2. LATANOPROST. [Concomitant]
     Active Substance: LATANOPROST
     Indication: GLAUCOMA
  3. HUMALOG [Suspect]
     Active Substance: INSULIN LISPRO
     Dosage: 13 U, TID
     Route: 065

REACTIONS (4)
  - Visual impairment [Unknown]
  - Eyelid disorder [Unknown]
  - Glaucoma [Unknown]
  - Dry eye [Not Recovered/Not Resolved]
